FAERS Safety Report 11757455 (Version 1)
Quarter: 2015Q4

REPORT INFORMATION
  Report Type: Spontaneous
  Country: US (occurrence: US)
  Receive Date: 20151120
  Receipt Date: 20151120
  Transmission Date: 20160304
  Serious: Yes (Hospitalization)
  Sender: FDA-Public Use
  Company Number: US-WATSON-2015-24125

PATIENT
  Age: 76 Year
  Sex: Male

DRUGS (2)
  1. TESTOSTERONE CYPIONATE (WATSON LABORATORIES) [Suspect]
     Active Substance: TESTOSTERONE CYPIONATE
     Indication: PRODUCT USED FOR UNKNOWN INDICATION
     Dosage: UNK
     Route: 065
  2. ANDRODERM [Suspect]
     Active Substance: TESTOSTERONE
     Indication: PRODUCT USED FOR UNKNOWN INDICATION
     Dosage: UNK
     Route: 062

REACTIONS (10)
  - Pain [Not Recovered/Not Resolved]
  - Skin sensitisation [Not Recovered/Not Resolved]
  - Nipple pain [Not Recovered/Not Resolved]
  - Coronary artery bypass [Recovered/Resolved]
  - Injection site pain [Recovered/Resolved]
  - Application site irritation [Not Recovered/Not Resolved]
  - Cardiac pacemaker insertion [Recovered/Resolved]
  - Heart valve replacement [Recovered/Resolved]
  - Erythema [Not Recovered/Not Resolved]
  - Application site erythema [Not Recovered/Not Resolved]

NARRATIVE: CASE EVENT DATE: 201502
